FAERS Safety Report 4946726-2 (Version None)
Quarter: 2006Q1

REPORT INFORMATION
  Report Type: 
  Country: None (occurrence: None)
  Receive Date: 20060317
  Receipt Date: 20051020
  Transmission Date: 20060701
  Serious: Yes (Hospitalization, Disabling)
  Sender: FDA-Public Use
  Company Number: US-MERCK-0510USA08455

PATIENT
  Age: 53 Year
  Sex: Female
  Weight: 92 kg

DRUGS (6)
  1. VIOXX [Suspect]
     Indication: JOINT INJURY
     Route: 048
     Dates: start: 20020524, end: 20040912
  2. DETROL [Concomitant]
     Route: 065
  3. TYLENOL (CAPLET) [Concomitant]
     Route: 065
  4. ANTIMICROBIAL (UNSPECIFIED) [Concomitant]
     Route: 065
  5. VOLTAREN [Concomitant]
     Route: 065
     Dates: start: 19940101, end: 20041201
  6. NABUMETONE [Concomitant]
     Route: 065

REACTIONS (6)
  - CARDIAC ANEURYSM [None]
  - CARDIOMEGALY [None]
  - CEREBROVASCULAR ACCIDENT [None]
  - GLUCOSE TOLERANCE IMPAIRED [None]
  - HYPERCHOLESTEROLAEMIA [None]
  - ROTATOR CUFF SYNDROME [None]
